FAERS Safety Report 5604167-9 (Version None)
Quarter: 2008Q1

REPORT INFORMATION
  Report Type: 
  Country: None (occurrence: None)
  Receive Date: 20080123
  Receipt Date: 20080123
  Transmission Date: 20080703
  Serious: Yes (Disabling)
  Sender: FDA-Public Use
  Company Number: None

PATIENT
  Age: 25 Year
  Sex: Male
  Weight: 82 kg

DRUGS (1)
  1. PEGINTRON INTERFERON ALPHA 2B SCHERING PLOUGH [Suspect]
     Indication: HEPATITIS B
     Dosage: 50MCG/0.5ML 1 ONE TIME
     Dates: start: 20070828, end: 20070828

REACTIONS (29)
  - AGGRESSION [None]
  - ANOREXIA [None]
  - BACK PAIN [None]
  - CHEST DISCOMFORT [None]
  - CHEST PAIN [None]
  - CHILLS [None]
  - CHROMATURIA [None]
  - CONTUSION [None]
  - COUGH [None]
  - DYSARTHRIA [None]
  - DYSPNOEA [None]
  - FACE OEDEMA [None]
  - GASTRIC DISORDER [None]
  - HALLUCINATION [None]
  - HEART RATE IRREGULAR [None]
  - HEMIPARESIS [None]
  - HOMICIDAL IDEATION [None]
  - HYPOAESTHESIA [None]
  - MENTAL DISORDER [None]
  - MOOD ALTERED [None]
  - NERVOUSNESS [None]
  - PHARYNGOLARYNGEAL PAIN [None]
  - PRURITUS [None]
  - RASH [None]
  - THIRST [None]
  - URINE OUTPUT DECREASED [None]
  - VISUAL DISTURBANCE [None]
  - WEIGHT DECREASED [None]
  - YELLOW SKIN [None]
